FAERS Safety Report 20931798 (Version 1)
Quarter: 2022Q2

REPORT INFORMATION
  Report Type: Spontaneous
  Country: US (occurrence: US)
  Receive Date: 20220608
  Receipt Date: 20220608
  Transmission Date: 20220720
  Serious: Yes (Death, Other)
  Sender: FDA-Public Use
  Company Number: US-GSKCCFUS-Case-01398226_AE-80558

PATIENT

DRUGS (1)
  1. ZEJULA [Suspect]
     Active Substance: NIRAPARIB
     Indication: Product used for unknown indication
     Dosage: 200 MG
     Dates: start: 20220522

REACTIONS (1)
  - Death [Fatal]

NARRATIVE: CASE EVENT DATE: 20220603
